FAERS Safety Report 5150880-X (Version None)
Quarter: 2006Q4

REPORT INFORMATION
  Report Type: 
  Country: None (occurrence: None)
  Receive Date: 20061114
  Receipt Date: 20061103
  Transmission Date: 20070319
  Serious: Yes (Hospitalization, Other)
  Sender: FDA-Public Use
  Company Number: US-ELI_LILLY_AND_COMPANY-US200611000600

PATIENT
  Age: 78 Year
  Sex: Male

DRUGS (3)
  1. GEMZAR [Suspect]
     Indication: NON-SMALL CELL LUNG CANCER METASTATIC
     Dosage: UNK, UNK
     Dates: start: 20060601, end: 20060603
  2. GEMZAR [Suspect]
     Dosage: UNK, UNK
     Dates: start: 20060905, end: 20061001
  3. ANTIBIOTICS [Concomitant]
     Indication: STAPHYLOCOCCAL INFECTION
     Dates: start: 20060601

REACTIONS (6)
  - BACK PAIN [None]
  - CHILLS [None]
  - DYSPNOEA [None]
  - INTERVERTEBRAL DISCITIS [None]
  - PYREXIA [None]
  - STAPHYLOCOCCAL INFECTION [None]
